FAERS Safety Report 24097734 (Version 2)
Quarter: 2024Q3

REPORT INFORMATION
  Report Type: Spontaneous
  Country: DK (occurrence: DK)
  Receive Date: 20240716
  Receipt Date: 20240827
  Transmission Date: 20241017
  Serious: No
  Sender: MYLAN
  Company Number: DK-MYLANLABS-2024M1065437

PATIENT

DRUGS (1)
  1. EPIPEN [Suspect]
     Active Substance: EPINEPHRINE
     Indication: Product used for unknown indication
     Dosage: UNK
     Route: 065

REACTIONS (2)
  - Liquid product physical issue [None]
  - Product quality issue [None]
